FAERS Safety Report 15551517 (Version 1)
Quarter: 2018Q4

REPORT INFORMATION
  Report Type: Spontaneous
  Country: US (occurrence: US)
  Receive Date: 20181025
  Receipt Date: 20181025
  Transmission Date: 20190205
  Serious: No
  Sender: FDA-Public Use
  Company Number: US-TAKEDA-2018MPI013630

PATIENT
  Sex: Female

DRUGS (13)
  1. BREO ELLIPTA [Concomitant]
     Active Substance: FLUTICASONE FUROATE\VILANTEROL TRIFENATATE
  2. FOLIC ACID. [Concomitant]
     Active Substance: FOLIC ACID
  3. ASPIRIN. [Concomitant]
     Active Substance: ASPIRIN
  4. OXYCODONE HYDROCHLORIDE. [Concomitant]
     Active Substance: OXYCODONE HYDROCHLORIDE
  5. SULFAMETHOXAZOLE AND TRIMETHOPRIM [Concomitant]
     Active Substance: SULFAMETHOXAZOLE\TRIMETHOPRIM
  6. ACYCLOVIR                          /00587301/ [Concomitant]
     Active Substance: ACYCLOVIR
  7. IRON [Concomitant]
     Active Substance: IRON
  8. PLAQUENIL                          /00072602/ [Concomitant]
     Active Substance: HYDROXYCHLOROQUINE DIPHOSPHATE
  9. PREDNISONE. [Concomitant]
     Active Substance: PREDNISONE
  10. GABAPENTIN. [Concomitant]
     Active Substance: GABAPENTIN
  11. ENALAPRIL MALEATE. [Concomitant]
     Active Substance: ENALAPRIL MALEATE
  12. ALEVE [Concomitant]
     Active Substance: NAPROXEN SODIUM
  13. NINLARO [Suspect]
     Active Substance: IXAZOMIB CITRATE
     Indication: PLASMA CELL MYELOMA
     Dosage: 4 MG, UNK
     Route: 048
     Dates: start: 20180921

REACTIONS (3)
  - Off label use [Unknown]
  - Vomiting [Unknown]
  - Diarrhoea [Unknown]
